FAERS Safety Report 9520062 (Version 1)
Quarter: 2013Q1

REPORT INFORMATION
  Report Type: Spontaneous
  Country: US (occurrence: None)
  Receive Date: 20130305
  Receipt Date: 20130305
  Transmission Date: 20140127
  Serious: Yes (Other)
  Sender: FDA-Public Use
  Company Number: 163-21880-12082667

PATIENT
  Age: 63 Year
  Sex: Female

DRUGS (15)
  1. REVLIMID (LENALIDOMIDE) (CAPSULES) [Suspect]
     Indication: PLASMA CELL MYELOMA
     Route: 048
     Dates: start: 20090115, end: 20090206
  2. VELCADE (BORTEZOMIB) [Concomitant]
  3. CYTOXAN (CYCLOPHOSPHAMIDE) [Concomitant]
  4. PREDNISONE (PREDNISONE) [Concomitant]
  5. PROCRIT [Concomitant]
  6. ALLOPURINOL [Concomitant]
  7. AMIODARONE (AMIODARONE) [Concomitant]
  8. ASTELIN (AZELASTINE HYDROCHLORIDE) [Concomitant]
  9. ATROVENT (IPRATROPIUM BROMIDE) [Concomitant]
  10. CALCIUM CARBONATE (CALCIUM CARBONATE) [Concomitant]
  11. CARDIZEM (DILTIAZEM HYDROCHLORIDE) [Concomitant]
  12. ALLEGRA [Concomitant]
  13. FOLATE (FOLIC ACID) [Concomitant]
  14. INSULIN (INSULIN) [Concomitant]
  15. SYNTHROID (LEVOTHYROXINE SODIUM) [Concomitant]

REACTIONS (4)
  - Renal failure acute [None]
  - Pancytopenia [None]
  - Pneumonia [None]
  - Hyperglycaemia [None]
